FAERS Safety Report 9450564 (Version 2)
Quarter: 2013Q4

REPORT INFORMATION
  Report Type: Spontaneous
  Country: US (occurrence: US)
  Receive Date: 20130809
  Receipt Date: 20131204
  Transmission Date: 20140711
  Serious: Yes (Hospitalization)
  Sender: FDA-Public Use
  Company Number: US-GLAXOSMITHKLINE-A1036846A

PATIENT
  Age: 71 Year
  Sex: Male

DRUGS (26)
  1. VENTOLIN HFA [Suspect]
     Indication: DYSPNOEA
     Dosage: 90MCG AS REQUIRED
     Route: 055
     Dates: start: 20130505
  2. ADVAIR [Suspect]
     Indication: PRODUCT USED FOR UNKNOWN INDICATION
     Dosage: 2PUFF TWICE PER DAY
     Route: 055
  3. NORVASC [Concomitant]
  4. TUMS [Concomitant]
  5. VITAMIN D [Concomitant]
  6. OMNARIS [Concomitant]
  7. KLONOPIN [Concomitant]
  8. CYANOCOBALAMIN [Concomitant]
  9. FLEXERIL [Concomitant]
  10. PERI-COLACE [Concomitant]
  11. IRON [Concomitant]
  12. LORTAB [Concomitant]
  13. HYDROCORTISONE [Concomitant]
     Route: 061
  14. ATARAX [Concomitant]
  15. SYNTHROID [Concomitant]
  16. LORATADINE [Concomitant]
  17. MILK OF MAGNESIA [Concomitant]
  18. MULTIPLE VITAMINS [Concomitant]
  19. PRILOSEC [Concomitant]
  20. PAXIL [Concomitant]
  21. MIRAPEX [Concomitant]
  22. PREDNISONE [Concomitant]
  23. VIAGRA [Concomitant]
  24. OCEAN [Concomitant]
  25. SPIRIVA [Concomitant]
  26. JANTOVEN [Concomitant]

REACTIONS (1)
  - Oxygen saturation decreased [Unknown]
